FAERS Safety Report 25585765 (Version 2)
Quarter: 2025Q3

REPORT INFORMATION
  Report Type: Spontaneous
  Country: EU (occurrence: EU)
  Receive Date: 20250721
  Receipt Date: 20250930
  Transmission Date: 20251020
  Serious: Yes (Other)
  Sender: GILEAD
  Company Number: EU-GILEAD-2025-0721177

PATIENT
  Age: 38 Year
  Sex: Female

DRUGS (1)
  1. BIKTARVY [Suspect]
     Active Substance: BICTEGRAVIR SODIUM\EMTRICITABINE\TENOFOVIR ALAFENAMIDE FUMARATE
     Indication: Product used for unknown indication
     Route: 065

REACTIONS (4)
  - Histoplasmosis disseminated [Recovered/Resolved]
  - Acute kidney injury [Unknown]
  - Escherichia urinary tract infection [Recovered/Resolved]
  - Treatment noncompliance [Unknown]
